FAERS Safety Report 9259539 (Version 3)
Quarter: 2013Q2

REPORT INFORMATION
  Report Type: Spontaneous
  Country: CA (occurrence: CA)
  Receive Date: 20130429
  Receipt Date: 20130512
  Transmission Date: 20140414
  Serious: Yes (Other)
  Sender: FDA-Public Use
  Company Number: CA-AMGEN-CANSP2013028631

PATIENT
  Age: 60 Year
  Sex: Female

DRUGS (4)
  1. ENBREL [Suspect]
     Indication: RHEUMATOID ARTHRITIS
     Dosage: 50 MG, QWK
     Route: 058
     Dates: start: 20130407, end: 20130421
  2. COVERSYL                           /00790702/ [Concomitant]
     Dosage: UNK
  3. CRESTOR [Concomitant]
     Dosage: UNK
  4. METHOTREXATE [Concomitant]
     Indication: RHEUMATOID ARTHRITIS
     Dosage: 20 MG, QWK
     Route: 048
     Dates: start: 20111219

REACTIONS (10)
  - Injection site reaction [Recovering/Resolving]
  - Injection site erythema [Recovering/Resolving]
  - Injection site warmth [Not Recovered/Not Resolved]
  - Injection site induration [Recovering/Resolving]
  - Injection site pain [Recovering/Resolving]
  - Nausea [Recovering/Resolving]
  - Diarrhoea [Recovering/Resolving]
  - Headache [Not Recovered/Not Resolved]
  - Pyrexia [Unknown]
  - Cellulitis [Recovering/Resolving]
